FAERS Safety Report 24650704 (Version 2)
Quarter: 2025Q2

REPORT INFORMATION
  Report Type: Spontaneous
  Country: BE (occurrence: BE)
  Receive Date: 20241122
  Receipt Date: 20250611
  Transmission Date: 20250716
  Serious: Yes (Other)
  Sender: AUROBINDO
  Company Number: BE-SA-2024SA321560

PATIENT
  Age: 55 Year
  Sex: Male

DRUGS (4)
  1. DOCETAXEL [Suspect]
     Active Substance: DOCETAXEL
     Indication: Hormone-dependent prostate cancer
     Route: 065
     Dates: start: 201711
  2. GONADORELIN [Concomitant]
     Active Substance: GONADORELIN
     Indication: Hormone-dependent prostate cancer
     Route: 065
     Dates: start: 201711
  3. CABAZITAXEL [Concomitant]
     Active Substance: CABAZITAXEL
     Indication: Polyneuropathy
     Route: 065
     Dates: end: 202308
  4. XGEVA [Concomitant]
     Active Substance: DENOSUMAB
     Indication: Product used for unknown indication
     Route: 065

REACTIONS (1)
  - Polyneuropathy [Unknown]
